FAERS Safety Report 5325219-7 (Version None)
Quarter: 2007Q2

REPORT INFORMATION
  Report Type: 
  Country: None (occurrence: None)
  Receive Date: 20070515
  Receipt Date: 20070504
  Transmission Date: 20071010
  Serious: Yes (Other)
  Sender: FDA-Public Use
  Company Number: US-ROCHE-489730

PATIENT
  Age: 49 Year
  Sex: Female
  Weight: 91.6 kg

DRUGS (4)
  1. XENICAL [Suspect]
     Indication: DRUG USE FOR UNKNOWN INDICATION
     Route: 065
     Dates: start: 20020513
  2. XENICAL [Suspect]
     Route: 065
     Dates: start: 20060901
  3. XENICAL [Suspect]
     Route: 065
     Dates: start: 20070315
  4. PREVACID [Concomitant]
     Dates: start: 20020513

REACTIONS (6)
  - BLOOD TRIGLYCERIDES INCREASED [None]
  - CARPAL TUNNEL SYNDROME [None]
  - DRUG INEFFECTIVE [None]
  - HOT FLUSH [None]
  - NO ADVERSE EFFECT [None]
  - STEATORRHOEA [None]
